FAERS Safety Report 6417974-X (Version None)
Quarter: 2009Q4

REPORT INFORMATION
  Report Type: 
  Country: None (occurrence: None)
  Receive Date: 20091028
  Receipt Date: 20091019
  Transmission Date: 20100525
  Serious: Yes (Hospitalization, Other)
  Sender: FDA-Public Use
  Company Number: US-MERCK-0910USA02958

PATIENT
  Age: 67 Year
  Sex: Female

DRUGS (2)
  1. FOSAMAX [Suspect]
     Indication: OSTEOPENIA
     Route: 048
     Dates: start: 19910101, end: 20070101
  2. IBANDRONATE SODIUM [Concomitant]
     Route: 065
     Dates: start: 20070101

REACTIONS (1)
  - FEMUR FRACTURE [None]
